FAERS Safety Report 6521952-X (Version None)
Quarter: 2009Q4

REPORT INFORMATION
  Report Type: 
  Country: None (occurrence: None)
  Receive Date: 20091230
  Receipt Date: 20091217
  Transmission Date: 20100525
  Serious: Yes (Hospitalization, Other)
  Sender: FDA-Public Use
  Company Number: US-PFIZER INC-2009304306

PATIENT
  Sex: Female
  Weight: 92.986 kg

DRUGS (10)
  1. LIPITOR [Suspect]
     Indication: HYPERLIPIDAEMIA
     Dosage: 10 MG, 1X/DAY
     Route: 048
     Dates: start: 20091105
  2. PLAVIX [Suspect]
     Indication: HYPERTENSION
     Dosage: 75 MG, DAILY
     Route: 048
     Dates: start: 20091103, end: 20091125
  3. PLAVIX [Suspect]
     Indication: TOBACCO USER
  4. PLAVIX [Suspect]
     Indication: HYPERLIPIDAEMIA
  5. PLAVIX [Suspect]
     Indication: ANGINA PECTORIS
  6. ATENOLOL [Concomitant]
     Dosage: 50 MG, UNKNOWN
  7. ACETYLSALICYLIC ACID [Concomitant]
     Dosage: 325 MG, UNKNOWN
  8. FISH OIL [Concomitant]
     Dosage: UNKNOWN
  9. SYNTHROID [Concomitant]
     Dosage: UNK
  10. LASIX [Concomitant]
     Dosage: UNK

REACTIONS (7)
  - ARTERIOSCLEROSIS [None]
  - CARDIAC DISORDER [None]
  - CHEST PAIN [None]
  - CORONARY ARTERY DISEASE [None]
  - ERYTHEMA [None]
  - HYPERSENSITIVITY [None]
  - SKIN EXFOLIATION [None]
